FAERS Safety Report 5948037-5 (Version None)
Quarter: 2008Q4

REPORT INFORMATION
  Report Type: 
  Country: None (occurrence: None)
  Receive Date: 20081111
  Receipt Date: 20081104
  Transmission Date: 20090506
  Serious: Yes (Hospitalization)
  Sender: FDA-Public Use
  Company Number: US-WYE-H06667408

PATIENT
  Sex: Male
  Weight: 92 kg

DRUGS (17)
  1. TEMSIROLIMUS [Suspect]
     Indication: COLORECTAL CANCER
     Route: 042
     Dates: start: 20081010, end: 20081024
  2. BACTRIM DS [Concomitant]
     Dosage: UNKNOWN
     Route: 065
     Dates: start: 20080926
  3. COMBIVENT [Concomitant]
     Dosage: UNKNOWN
     Route: 065
     Dates: start: 20081003
  4. IMODIUM [Concomitant]
     Dosage: UNKNOWN
     Route: 065
     Dates: start: 20080926
  5. METOPROLOL SUCCINATE [Concomitant]
     Dosage: UNKNOWN
     Route: 065
     Dates: start: 20080926
  6. MORPHINE SULFATE [Concomitant]
     Dosage: UNKNOWN
     Route: 065
     Dates: start: 20081003
  7. MULTIVIT [Concomitant]
     Dosage: UNKNOWN
     Route: 065
     Dates: start: 20080926
  8. OXYCODONE HCL [Concomitant]
     Dosage: UNKNOWN
     Route: 065
     Dates: start: 20080926
  9. PERCOCET [Concomitant]
     Dosage: UNKNOWN
     Route: 065
     Dates: start: 20080926
  10. PREDNISONE [Concomitant]
     Dosage: UNKNOWN
     Route: 065
     Dates: start: 20080926
  11. PROTONIX [Concomitant]
     Dosage: UNKNOWN
     Route: 065
     Dates: start: 20080926
  12. SENOKOT [Concomitant]
     Dosage: UNKNOWN
     Route: 065
     Dates: start: 20080926
  13. SIMVASTATIN [Concomitant]
     Dosage: UNKNOWN
     Route: 065
     Dates: start: 20080926
  14. TESSALON [Concomitant]
     Dosage: UNKNOWN
     Route: 065
     Dates: start: 20081016
  15. ONDANSETRON HYDROCHLORIDE [Concomitant]
     Dosage: UNKNOWN
     Route: 065
     Dates: start: 20081003
  16. CETUXIMAB [Suspect]
     Indication: COLORECTAL CANCER
     Route: 042
     Dates: start: 20080926, end: 20080926
  17. CETUXIMAB [Suspect]
     Route: 042
     Dates: start: 20081010, end: 20081024

REACTIONS (1)
  - ATRIAL FIBRILLATION [None]
